FAERS Safety Report 9342921 (Version 2)
Quarter: 2013Q3

REPORT INFORMATION
  Report Type: Spontaneous
  Country: US (occurrence: US)
  Receive Date: 20130611
  Receipt Date: 20130705
  Transmission Date: 20140515
  Serious: Yes (Other)
  Sender: FDA-Public Use
  Company Number: US-ELI_LILLY_AND_COMPANY-US201304006729

PATIENT
  Age: 74 Year
  Sex: Female
  Weight: 57.14 kg

DRUGS (9)
  1. FORTEO [Suspect]
     Indication: OSTEOPOROSIS
     Dosage: 20 UG, QD
     Route: 058
     Dates: start: 20130327
  2. SPIRIVA [Concomitant]
     Dosage: 15 UG, UNK
  3. SINGULAIR [Concomitant]
     Dosage: 10 MG, EACH EVENING
  4. SYNTHROID [Concomitant]
     Dosage: 25 UG, EACH MORNING
  5. CALCIUM + VITAMIN D [Concomitant]
  6. VITAMIN D3 [Concomitant]
     Dosage: 1000 IU, UNK
  7. EPIPEN [Concomitant]
     Dosage: UNK, PRN
  8. TOPROL [Concomitant]
  9. ASA [Concomitant]

REACTIONS (9)
  - Angina pectoris [Recovered/Resolved]
  - Mitral valve incompetence [Unknown]
  - Aortic valve incompetence [Unknown]
  - Blood pressure increased [Unknown]
  - Diastolic dysfunction [Unknown]
  - Myocardial ischaemia [Unknown]
  - Chest pain [Recovered/Resolved]
  - Tricuspid valve incompetence [Unknown]
  - Pulmonary valve incompetence [Unknown]
